FAERS Safety Report 5907784-1 (Version None)
Quarter: 2008Q4

REPORT INFORMATION
  Report Type: 
  Country: None (occurrence: None)
  Receive Date: 20081003
  Receipt Date: 20080924
  Transmission Date: 20090506
  Serious: Yes (Hospitalization)
  Sender: FDA-Public Use
  Company Number: US-PURDUE-USA_2008_0035121

PATIENT
  Age: 56 Year
  Sex: Male

DRUGS (7)
  1. OXYCONTIN [Suspect]
     Indication: PAIN
     Dosage: 240 MG, BID
     Route: 048
     Dates: start: 20080903
  2. MORPHINE SULFATE [Concomitant]
     Indication: PAIN
     Dosage: 300 MG, TID
     Route: 048
  3. VALIUM [Concomitant]
     Indication: MUSCLE SPASMS
     Dosage: 30 MG, DAILY
     Route: 048
     Dates: start: 20000101
  4. LUNESTA [Concomitant]
     Indication: INSOMNIA
     Dosage: 3 MG, DAILY
     Route: 048
     Dates: start: 20060101
  5. PREDNISONE [Concomitant]
     Indication: CROHN'S DISEASE
     Dosage: 40 MG, DAILY
     Route: 048
     Dates: start: 20080918
  6. OPIUM TINCTURE [Concomitant]
     Indication: DIARRHOEA
     Dosage: 30 ML, DAILY
     Route: 048
     Dates: start: 20060101
  7. HYDROMORPHONE HCL (SIMILAR TO 19-892) [Concomitant]
     Indication: PAIN
     Dosage: UNK GRAIN, UNK
     Route: 048

REACTIONS (5)
  - CROHN'S DISEASE [None]
  - DIARRHOEA [None]
  - GASTROINTESTINAL HAEMORRHAGE [None]
  - MEDICATION RESIDUE [None]
  - WRONG TECHNIQUE IN DRUG USAGE PROCESS [None]
